FAERS Safety Report 25281144 (Version 1)
Quarter: 2025Q2

REPORT INFORMATION
  Report Type: Spontaneous
  Country: US (occurrence: US)
  Receive Date: 20250508
  Receipt Date: 20250508
  Transmission Date: 20250717
  Serious: Yes (Other)
  Sender: COOPERSURGICAL
  Company Number: US-COOPERSURGICAL, INC.-2025CPS003540

PATIENT
  Age: 32 Year
  Sex: Female

DRUGS (3)
  1. PARAGARD T 380A [Suspect]
     Active Substance: COPPER
     Indication: Contraception
     Route: 015
     Dates: start: 20140101
  2. ZOVIRAX [Concomitant]
     Active Substance: ACYCLOVIR
     Dates: start: 20200421, end: 20221130
  3. RISPERDAL [Concomitant]
     Active Substance: RISPERIDONE
     Dates: start: 20200505

REACTIONS (7)
  - Abortion induced [Recovered/Resolved]
  - Device breakage [Unknown]
  - Foreign body in reproductive tract [Unknown]
  - Complication of device removal [Unknown]
  - Pregnancy with contraceptive device [Recovered/Resolved]
  - Drug ineffective [Unknown]
  - Pelvic pain [Unknown]

NARRATIVE: CASE EVENT DATE: 20200505
